FAERS Safety Report 7269331-4 (Version None)
Quarter: 2011Q1

REPORT INFORMATION
  Report Type: 
  Country: None (occurrence: None)
  Receive Date: 20110202
  Receipt Date: 20110124
  Transmission Date: 20110831
  Serious: Yes (Life-Threatening, Other)
  Sender: FDA-Public Use
  Company Number: DE-JNJFOC-20090404942

PATIENT
  Age: 9 Decade
  Sex: Female

DRUGS (2)
  1. REOPRO [Suspect]
     Route: 042
  2. REOPRO [Suspect]
     Indication: ILL-DEFINED DISORDER
     Dosage: 12 HOUR INFUSION
     Route: 042

REACTIONS (4)
  - HAEMORRHAGE [None]
  - HAEMOGLOBIN DECREASED [None]
  - VENTRICULAR TACHYCARDIA [None]
  - CARDIAC ARREST [None]
